FAERS Safety Report 6856324-1 (Version None)
Quarter: 2010Q2

REPORT INFORMATION
  Report Type: 
  Country: None (occurrence: None)
  Receive Date: 20100630
  Receipt Date: 20100325
  Transmission Date: 20101027
  Serious: No
  Sender: FDA-Public Use
  Company Number: 1000012775

PATIENT

DRUGS (1)
  1. BYSTOLIC [Suspect]
     Dosage: 2.5 MG (2.5 MG,1 IN 1 D),ORAL
     Route: 048
     Dates: start: 20090501

REACTIONS (1)
  - VENTRICULAR EXTRASYSTOLES [None]
